FAERS Safety Report 15410850 (Version 1)
Quarter: 2018Q3

REPORT INFORMATION
  Report Type: Spontaneous
  Country: US (occurrence: US)
  Receive Date: 20180919
  Receipt Date: 20180919
  Transmission Date: 20181010
  Serious: Yes (Other)
  Sender: FDA-Public Use
  Company Number: None

PATIENT
  Age: 47 Year
  Sex: Female
  Weight: 48.6 kg

DRUGS (1)
  1. YESCARTA [Suspect]
     Active Substance: AXICABTAGENE CILOLEUCEL
     Indication: B-CELL LYMPHOMA
     Route: 042
     Dates: start: 20180612, end: 20180612

REACTIONS (4)
  - Cytokine release syndrome [None]
  - Encephalopathy [None]
  - Atrial fibrillation [None]
  - Acute kidney injury [None]

NARRATIVE: CASE EVENT DATE: 20180612
